FAERS Safety Report 9646090 (Version 2)
Quarter: 2013Q4

REPORT INFORMATION
  Report Type: Spontaneous
  Country: US (occurrence: US)
  Receive Date: 20131025
  Receipt Date: 20131025
  Transmission Date: 20140711
  Serious: No
  Sender: FDA-Public Use
  Company Number: US-TEVA-403947USA

PATIENT
  Age: 64 Year
  Sex: Female

DRUGS (15)
  1. PACLITAXEL [Suspect]
     Indication: OVARIAN DISORDER
  2. CARBOPLATIN [Suspect]
  3. AVASTIN [Suspect]
  4. SOLODYN [Concomitant]
  5. ZYRTEC [Concomitant]
  6. WARFARIN [Concomitant]
  7. COMPAZINE [Concomitant]
  8. ATIVAN [Concomitant]
  9. POTASSIUM [Concomitant]
  10. ESCITALOPRAM [Concomitant]
  11. PROTONIX [Concomitant]
  12. LEXAPRO [Concomitant]
  13. ZOFRAN [Concomitant]
  14. MEGACE [Concomitant]
  15. HYDROXYZINE [Concomitant]

REACTIONS (1)
  - Rash [Recovered/Resolved]
